FAERS Safety Report 7202628-2 (Version None)
Quarter: 2010Q4

REPORT INFORMATION
  Report Type: 
  Country: None (occurrence: None)
  Receive Date: 20101229
  Receipt Date: 20101117
  Transmission Date: 20110411
  Serious: No
  Sender: FDA-Public Use
  Company Number: US-PFIZER INC-2010152449

PATIENT

DRUGS (3)
  1. ATORVASTATIN CALCIUM [Suspect]
     Dosage: 40 MG, 1X/DAY
     Route: 048
  2. ATORVASTATIN CALCIUM [Suspect]
     Dosage: 20 MG, 1X/DAY
     Dates: start: 20100101
  3. FENOFIBRIC ACID [Suspect]
     Indication: HYPERTRIGLYCERIDAEMIA
     Dosage: 135 MG, 1X/DAY
     Route: 048
     Dates: start: 20100101

REACTIONS (1)
  - LIVER FUNCTION TEST ABNORMAL [None]
